FAERS Safety Report 6706449-6 (Version None)
Quarter: 2010Q2

REPORT INFORMATION
  Report Type: 
  Country: None (occurrence: None)
  Receive Date: 20100503
  Receipt Date: 20100421
  Transmission Date: 20101027
  Serious: Yes (Other)
  Sender: FDA-Public Use
  Company Number: US-PFIZER INC-2010039134

PATIENT
  Sex: Female
  Weight: 70 kg

DRUGS (7)
  1. CHANTIX [Suspect]
     Indication: SMOKING CESSATION THERAPY
     Dosage: 0.5 MG, 1X/DAY
     Dates: start: 20100121, end: 20100304
  2. NORVASC [Suspect]
     Indication: HYPERTENSION
     Dosage: 5 MG, 1X/DAY
     Dates: end: 20100316
  3. CLINDAMYCIN HCL [Suspect]
     Indication: OSTEOMYELITIS
     Dosage: 300 MG, UNK
     Dates: start: 20100101, end: 20100101
  4. AVALIDE [Suspect]
     Indication: HYPERTENSION
     Dosage: [IRBESARTAN 300MG]/[HYDROCHLOROTHIAZIDE 12.5MG], ONCE A DAY
     Dates: end: 20100316
  5. MELATONIN [Concomitant]
     Dosage: UNK
  6. NEXIUM [Concomitant]
     Dosage: 40 MG, UNK
  7. LEXAPRO [Concomitant]
     Dosage: 10 MG, UNK

REACTIONS (6)
  - BLOOD GLUCOSE INCREASED [None]
  - OSTEOMYELITIS [None]
  - PRURITUS [None]
  - RASH [None]
  - RASH PAPULAR [None]
  - SWELLING [None]
